FAERS Safety Report 14973980 (Version 2)
Quarter: 2018Q4

REPORT INFORMATION
  Report Type: Spontaneous
  Country: US (occurrence: US)
  Receive Date: 20180605
  Receipt Date: 20181129
  Transmission Date: 20190204
  Serious: No
  Sender: FDA-Public Use
  Company Number: US-SA-2018SA128795

PATIENT
  Age: 46 Year
  Sex: Female

DRUGS (11)
  1. ALPRAZOLAM. [Concomitant]
     Active Substance: ALPRAZOLAM
  2. CITALOPRAM [Concomitant]
     Active Substance: CITALOPRAM HYDROBROMIDE
  3. MYCOPHENOLATE [Concomitant]
     Active Substance: MYCOPHENOLIC ACID
  4. DUPIXENT [Suspect]
     Active Substance: DUPILUMAB
     Dosage: 300 MG/2 ML
     Route: 058
     Dates: start: 20180323
  5. IMITREX [SUMATRIPTAN] [Concomitant]
  6. LISINOPRIL. [Concomitant]
     Active Substance: LISINOPRIL
  7. DUPIXENT [Suspect]
     Active Substance: DUPILUMAB
     Indication: DERMATITIS ATOPIC
     Dosage: 300 MG,QOW
     Route: 058
     Dates: start: 20180322
  8. YAZ [Concomitant]
     Active Substance: DROSPIRENONE\ETHINYL ESTRADIOL
  9. SUMATRIPTAN. [Concomitant]
     Active Substance: SUMATRIPTAN
  10. TERBINAFINE. [Concomitant]
     Active Substance: TERBINAFINE
  11. TRICOR [ADENOSINE] [Concomitant]

REACTIONS (2)
  - Injection site reaction [Not Recovered/Not Resolved]
  - Headache [Not Recovered/Not Resolved]
